FAERS Safety Report 4331601-7 (Version None)
Quarter: 2004Q1

REPORT INFORMATION
  Report Type: 
  Country: None (occurrence: None)
  Receive Date: 20040329
  Receipt Date: 20040319
  Transmission Date: 20041129
  Serious: Yes (Hospitalization, Other)
  Sender: FDA-Public Use
  Company Number: 2004-03-1549

PATIENT

DRUGS (2)
  1. PEG-INTRON [Suspect]
     Indication: HEPATITIS
     Dates: start: 20021001, end: 20030101
  2. REBETOL [Suspect]
     Indication: HEPATITIS
     Dosage: ORAL
     Route: 048
     Dates: start: 20021001, end: 20030101

REACTIONS (4)
  - BLOOD POTASSIUM DECREASED [None]
  - CEREBROSPINAL FLUID LEAKAGE [None]
  - RED BLOOD CELL ABNORMALITY [None]
  - WHITE BLOOD CELL DISORDER [None]
